FAERS Safety Report 10181817 (Version 1)
Quarter: 2014Q2

REPORT INFORMATION
  Report Type: Spontaneous
  Country: GR (occurrence: GR)
  Receive Date: 20140519
  Receipt Date: 20140519
  Transmission Date: 20141212
  Serious: Yes (Other)
  Sender: FDA-Public Use
  Company Number: GR-PFIZER INC-2014134397

PATIENT
  Age: 70 Year
  Sex: Female

DRUGS (5)
  1. XANAX [Suspect]
     Dosage: 0.25 MG (HALF OF 0.5 MG TABLET), 2X/DAY (HALF A TABLET IN THE MORNING AND HALF A TABLET AT NIGHT)
     Dates: start: 201404
  2. ZOLOFT [Concomitant]
     Dosage: UNK
  3. ZYPREXA [Concomitant]
     Dosage: UNK
  4. ALOPERIDIN [Concomitant]
     Dosage: UNK
  5. ANAFRANIL [Concomitant]
     Dosage: UNK

REACTIONS (1)
  - Amnesia [Unknown]
